FAERS Safety Report 5718025-2 (Version None)
Quarter: 2008Q2

REPORT INFORMATION
  Report Type: 
  Country: None (occurrence: None)
  Receive Date: 20080425
  Receipt Date: 20080423
  Transmission Date: 20081010
  Serious: Yes (Hospitalization)
  Sender: FDA-Public Use
  Company Number: D0056853A

PATIENT
  Age: 21 Year
  Sex: Male
  Weight: 60 kg

DRUGS (1)
  1. ELONTRIL [Suspect]
     Dosage: 150MG SEE DOSAGE TEXT
     Route: 048
     Dates: start: 20080401, end: 20080401

REACTIONS (5)
  - CONVULSION [None]
  - HALLUCINATION [None]
  - INTENTIONAL OVERDOSE [None]
  - SUICIDE ATTEMPT [None]
  - TACHYCARDIA [None]
